FAERS Safety Report 17020220 (Version 5)
Quarter: 2020Q4

REPORT INFORMATION
  Report Type: Other
  Country: US (occurrence: US)
  Receive Date: 20191112
  Receipt Date: 20201220
  Transmission Date: 20210113
  Serious: Yes (Hospitalization, Other)
  Sender: FDA-Public Use
  Company Number: US-ROCHE-2457143

PATIENT
  Age: 59 Year
  Sex: Female
  Weight: 77.63 kg

DRUGS (15)
  1. OCREVUS [Suspect]
     Active Substance: OCRELIZUMAB
     Indication: RELAPSING MULTIPLE SCLEROSIS
     Route: 042
     Dates: start: 2018
  2. OCREVUS [Suspect]
     Active Substance: OCRELIZUMAB
     Route: 042
  3. BACLOFEN. [Concomitant]
     Active Substance: BACLOFEN
     Dosage: OONGOING: UNKNOWN
     Route: 048
  4. OCREVUS [Suspect]
     Active Substance: OCRELIZUMAB
     Route: 042
     Dates: start: 201710
  5. GABAPENTIN. [Concomitant]
     Active Substance: GABAPENTIN
     Dosage: STOPPED DUE TO HALLUCINATIONS ;ONGOING: NO
     Route: 048
  6. POTASSIUM [Concomitant]
     Active Substance: POTASSIUM
     Route: 048
  7. OCREVUS [Suspect]
     Active Substance: OCRELIZUMAB
     Indication: PRIMARY PROGRESSIVE MULTIPLE SCLEROSIS
     Dosage: PUT ON HOLD DUE TO CELLULITIS ;ONGOING: NO
     Route: 042
     Dates: start: 201810
  8. GABAPENTIN. [Concomitant]
     Active Substance: GABAPENTIN
     Dosage: ONGOING: UNKNOWN
     Route: 048
  9. COLACE [Concomitant]
     Active Substance: DOCUSATE SODIUM
     Indication: CONSTIPATION
     Dosage: ONGOING: UNKNOWN
     Route: 048
  10. OCREVUS [Suspect]
     Active Substance: OCRELIZUMAB
     Indication: MULTIPLE SCLEROSIS
     Dosage: DOSE: 18/JUN/2018?ONGOING : YES
     Route: 042
     Dates: start: 20190118
  11. OCREVUS [Suspect]
     Active Substance: OCRELIZUMAB
     Route: 042
     Dates: start: 20180618
  12. OXYCODONE [Concomitant]
     Active Substance: OXYCODONE
     Dosage: 5MG/325MG?ONGOING: UNKNOWN
     Route: 048
  13. OCREVUS [Suspect]
     Active Substance: OCRELIZUMAB
     Route: 042
     Dates: start: 201801, end: 201905
  14. CRESTOR [Concomitant]
     Active Substance: ROSUVASTATIN CALCIUM
     Indication: BLOOD CHOLESTEROL INCREASED
     Dosage: ONGOING: UNKNOWN
     Route: 048
  15. OXYBUTIN [Concomitant]
     Active Substance: OXYBUTYNIN
     Dosage: ONGOING: UNKNOWN
     Route: 048

REACTIONS (19)
  - Escherichia infection [Recovered/Resolved]
  - Burning sensation [Not Recovered/Not Resolved]
  - Decreased appetite [Recovered/Resolved]
  - Localised infection [Recovered/Resolved]
  - Sepsis [Recovered/Resolved]
  - Dysstasia [Recovering/Resolving]
  - Asthenia [Not Recovered/Not Resolved]
  - Vomiting [Recovered/Resolved]
  - Illness [Not Recovered/Not Resolved]
  - Ulcer [Recovered/Resolved]
  - Device related infection [Recovered/Resolved]
  - Gait disturbance [Unknown]
  - Infected skin ulcer [Not Recovered/Not Resolved]
  - Lymphoedema [Unknown]
  - Hallucination [Recovered/Resolved]
  - Cellulitis [Not Recovered/Not Resolved]
  - Gastritis [Recovered/Resolved]
  - Cystitis [Recovered/Resolved]
  - Gait inability [Not Recovered/Not Resolved]

NARRATIVE: CASE EVENT DATE: 201905
